FAERS Safety Report 23472740 (Version 3)
Quarter: 2025Q1

REPORT INFORMATION
  Report Type: Report from Study
  Country: US (occurrence: US)
  Receive Date: 20240202
  Receipt Date: 20250301
  Transmission Date: 20250408
  Serious: Yes (Other)
  Sender: ABBVIE
  Company Number: US-ABBVIE-5516418

PATIENT
  Age: 66 Year
  Sex: Female
  Weight: 84 kg

DRUGS (6)
  1. HUMIRA [Suspect]
     Active Substance: ADALIMUMAB
     Indication: Rheumatoid arthritis
     Dosage: FORM STRENGTH: 40MG, CITRATE FREE
     Route: 058
     Dates: start: 20200805, end: 2021
  2. HUMIRA [Suspect]
     Active Substance: ADALIMUMAB
     Dosage: FORM STRENGTH: 40MG, CITRATE FREE,
     Route: 058
     Dates: start: 2021
  3. NITROGEN [Concomitant]
     Active Substance: NITROGEN
     Indication: Precancerous condition
  4. VITAMIN D [Concomitant]
     Active Substance: VITAMIN D NOS
     Indication: Vitamin supplementation
  5. ASPIRIN [Concomitant]
     Active Substance: ASPIRIN
     Indication: Supraventricular tachycardia
  6. METOPROLOL [Concomitant]
     Active Substance: METOPROLOL
     Indication: Supraventricular tachycardia

REACTIONS (19)
  - Squamous cell carcinoma of skin [Not Recovered/Not Resolved]
  - Intraocular pressure increased [Recovering/Resolving]
  - Eye irritation [Not Recovered/Not Resolved]
  - Actinic keratosis [Not Recovered/Not Resolved]
  - Precancerous skin lesion [Not Recovered/Not Resolved]
  - Sinusitis [Unknown]
  - Supraventricular tachycardia [Unknown]
  - Wheezing [Unknown]
  - Dyspnoea [Unknown]
  - Chest discomfort [Unknown]
  - Fatigue [Unknown]
  - Cough [Unknown]
  - Sneezing [Unknown]
  - Lacrimation increased [Unknown]
  - Rhinorrhoea [Unknown]
  - Nasal discharge discolouration [Unknown]
  - Respiratory tract infection [Recovered/Resolved]
  - Headache [Recovered/Resolved]
  - Pyrexia [Recovered/Resolved]

NARRATIVE: CASE EVENT DATE: 20200805
